FAERS Safety Report 6616590-4 (Version None)
Quarter: 2010Q1

REPORT INFORMATION
  Report Type: 
  Country: None (occurrence: None)
  Receive Date: 20100305
  Receipt Date: 20100225
  Transmission Date: 20100710
  Serious: Yes (Hospitalization)
  Sender: FDA-Public Use
  Company Number: PHHO2010US02674

PATIENT
  Sex: Male
  Weight: 96.7 kg

DRUGS (10)
  1. AFINITOR [Suspect]
     Indication: SARCOMA
     Dosage: 10 MG, DAILY
     Route: 048
     Dates: start: 20100203
  2. ALAVERT [Concomitant]
  3. ALEVE (CAPLET) [Concomitant]
  4. ASPIRIN [Concomitant]
  5. DECADRON [Concomitant]
  6. LIDOCAINE [Concomitant]
  7. MAALOX [Concomitant]
  8. DIPHENHYDRAMINE HYDROCHLORIDE [Concomitant]
  9. REGLAN [Concomitant]
  10. TERAZOSIN HYDROCHLORIDE [Concomitant]

REACTIONS (2)
  - POSTOPERATIVE WOUND COMPLICATION [None]
  - WOUND DEHISCENCE [None]
